FAERS Safety Report 7100165-7 (Version None)
Quarter: 2010Q4

REPORT INFORMATION
  Report Type: 
  Country: None (occurrence: None)
  Receive Date: 20101112
  Receipt Date: 20100618
  Transmission Date: 20110411
  Serious: No
  Sender: FDA-Public Use
  Company Number: A0867981A

PATIENT
  Age: 60 Year
  Sex: Male
  Weight: 75.9 kg

DRUGS (3)
  1. COREG [Suspect]
     Indication: ATRIAL FIBRILLATION
     Dosage: 6.25MG TWICE PER DAY
     Route: 048
     Dates: start: 20100423
  2. SIMCOR [Suspect]
     Route: 048
     Dates: start: 20100423
  3. VALSARTAN [Concomitant]
     Dosage: 320MG PER DAY

REACTIONS (2)
  - FLATULENCE [None]
  - HEADACHE [None]
